FAERS Safety Report 6763074-9 (Version None)
Quarter: 2010Q2

REPORT INFORMATION
  Report Type: 
  Country: None (occurrence: None)
  Receive Date: 20100609
  Receipt Date: 20100604
  Transmission Date: 20101027
  Serious: Yes (Life-Threatening)
  Sender: FDA-Public Use
  Company Number: PHHY2010US36526

PATIENT
  Sex: Female

DRUGS (15)
  1. RECLAST [Suspect]
     Dosage: 5 MG
     Route: 042
     Dates: start: 20100501
  2. IRON [Concomitant]
  3. SPIRIVA [Concomitant]
  4. VENTOLIN [Concomitant]
  5. FISH OIL [Concomitant]
  6. VITAMIN B6 [Concomitant]
  7. CREON [Concomitant]
  8. NITROGLYCERIN [Concomitant]
  9. THEOPHYLLINE [Concomitant]
  10. ZANTAC [Concomitant]
  11. LORCET-HD [Concomitant]
  12. COREG [Concomitant]
  13. PENICILLIN [Concomitant]
  14. CITRACAL [Concomitant]
  15. HYDROCHLOROTHIAZIDE [Concomitant]

REACTIONS (4)
  - FEELING ABNORMAL [None]
  - HEADACHE [None]
  - INFLUENZA LIKE ILLNESS [None]
  - VOMITING [None]
